FAERS Safety Report 4469193-4 (Version None)
Quarter: 2004Q4

REPORT INFORMATION
  Report Type: 
  Country: None (occurrence: None)
  Receive Date: 20041005
  Receipt Date: 20041005
  Transmission Date: 20050328
  Serious: Yes (Hospitalization)
  Sender: FDA-Public Use
  Company Number: None

PATIENT
  Sex: Male
  Weight: 83.9154 kg

DRUGS (2)
  1. VIOXX [Suspect]
     Indication: BACK PAIN
     Dosage: ONE  PER DAY  ORAL
     Route: 048
     Dates: start: 20040411, end: 20040925
  2. VIOXX [Suspect]
     Indication: PAIN IN EXTREMITY
     Dosage: ONE  PER DAY  ORAL
     Route: 048
     Dates: start: 20040411, end: 20040925

REACTIONS (1)
  - DYSPNOEA [None]
